FAERS Safety Report 19124167 (Version 2)
Quarter: 2021Q2

REPORT INFORMATION
  Report Type: Spontaneous
  Country: US (occurrence: US)
  Receive Date: 20210412
  Receipt Date: 20210518
  Transmission Date: 20210717
  Serious: No
  Sender: FDA-Public Use
  Company Number: US-BAYER-2021-120420

PATIENT
  Age: 31 Year
  Sex: Female
  Weight: 53.97 kg

DRUGS (2)
  1. KYLEENA [Suspect]
     Active Substance: LEVONORGESTREL
     Dosage: 20 ?G PER DAY, CONTINUOUSLY
     Route: 015
     Dates: start: 20210429, end: 20210429
  2. KYLEENA [Suspect]
     Active Substance: LEVONORGESTREL
     Dosage: 20 ?G PER DAY, CONTINUOUSLY
     Route: 015
     Dates: start: 20210429, end: 20210429

REACTIONS (4)
  - Complication of device insertion [None]
  - Post procedural discomfort [None]
  - Device physical property issue [None]
  - Device placement issue [Recovered/Resolved]

NARRATIVE: CASE EVENT DATE: 20210429
